FAERS Safety Report 5502453-4 (Version None)
Quarter: 2007Q4

REPORT INFORMATION
  Report Type: 
  Country: None (occurrence: None)
  Receive Date: 20071030
  Receipt Date: 20071018
  Transmission Date: 20080405
  Serious: Yes (Death, Hospitalization, Other)
  Sender: FDA-Public Use
  Company Number: LV-PFIZER INC-2007082625

PATIENT
  Sex: Male

DRUGS (12)
  1. CHAMPIX [Suspect]
     Indication: SMOKING CESSATION THERAPY
     Route: 048
     Dates: start: 20070601, end: 20070801
  2. TRAMADOL HCL [Concomitant]
     Route: 048
  3. ZOLPIDEM TARTRATE [Concomitant]
     Route: 048
  4. MIDAZOLAM HCL [Concomitant]
     Route: 048
  5. TORSEMIDE [Concomitant]
     Route: 048
  6. LOPERAMID [Concomitant]
     Route: 048
  7. ALL OTHER THERAPEUTIC PRODUCTS [Concomitant]
     Route: 048
  8. DEXTROMETHORPHAN HYDROBROMIDE [Concomitant]
     Route: 048
  9. OMEPRAZOLE [Concomitant]
     Route: 048
  10. METOPROLOL [Concomitant]
     Route: 048
  11. CODEINE PHOSPHATE/PARACETAMOL [Concomitant]
     Route: 048
  12. QUINAPRIL HCL [Concomitant]
     Route: 048

REACTIONS (10)
  - BLOOD COUNT ABNORMAL [None]
  - BLOOD CREATININE INCREASED [None]
  - BLOOD UREA INCREASED [None]
  - DEATH [None]
  - HEPATITIS [None]
  - LIVER FUNCTION TEST ABNORMAL [None]
  - LIVER TRANSPLANT [None]
  - OEDEMA [None]
  - PERFORMANCE STATUS DECREASED [None]
  - RENAL FAILURE [None]
